FAERS Safety Report 9059445 (Version 1)
Quarter: 2013Q1

REPORT INFORMATION
  Report Type: Spontaneous
  Country: ES (occurrence: ES)
  Receive Date: 20130212
  Receipt Date: 20130212
  Transmission Date: 20140127
  Serious: Yes (Other)
  Sender: FDA-Public Use
  Company Number: ES-009507513-1302ESP003103

PATIENT
  Age: 70 Year
  Sex: Female
  Weight: 97 kg

DRUGS (2)
  1. SINGULAIR [Suspect]
     Indication: PNEUMONIA
     Route: 065
     Dates: start: 20120614, end: 20120630
  2. TAVANIC [Concomitant]
     Route: 065
     Dates: start: 20120614, end: 20120624

REACTIONS (4)
  - Nervousness [Recovered/Resolved]
  - Anxiety [Recovered/Resolved]
  - Disorientation [Recovered/Resolved]
  - Restlessness [Recovered/Resolved]
